FAERS Safety Report 16732518 (Version 4)
Quarter: 2019Q4

REPORT INFORMATION
  Report Type: Report from Study
  Country: US (occurrence: US)
  Receive Date: 20190823
  Receipt Date: 20191212
  Transmission Date: 20200122
  Serious: Yes (Death, Hospitalization)
  Sender: FDA-Public Use
  Company Number: PHEH2019US034310

PATIENT
  Age: 72 Year
  Sex: Female

DRUGS (4)
  1. TREPROSTINIL. [Suspect]
     Active Substance: TREPROSTINIL
     Dosage: UNK
     Route: 042
     Dates: start: 20190814
  2. TREPROSTINIL. [Suspect]
     Active Substance: TREPROSTINIL
     Dosage: 43 NG/KG/MIN, CONTINUOUS
     Route: 042
     Dates: start: 20190703
  3. TREPROSTINIL. [Suspect]
     Active Substance: TREPROSTINIL
     Dosage: 79 NG/KG/MIIN, CONTINUOUS
     Route: 042
     Dates: start: 201908
  4. TREPROSTINIL. [Suspect]
     Active Substance: TREPROSTINIL
     Indication: PULMONARY ARTERIAL HYPERTENSION
     Dosage: 40 NG/KG/MIN, CONTINUOUS
     Route: 042
     Dates: start: 201905

REACTIONS (4)
  - Death [Fatal]
  - Nasal congestion [Unknown]
  - Peripheral swelling [Unknown]
  - Oedema peripheral [Unknown]

NARRATIVE: CASE EVENT DATE: 201906
